FAERS Safety Report 16382663 (Version 1)
Quarter: 2019Q2

REPORT INFORMATION
  Report Type: Spontaneous
  Country: US (occurrence: US)
  Receive Date: 20190501
  Receipt Date: 20190501
  Transmission Date: 20190711
  Serious: Yes (Life-Threatening, Disabling)
  Sender: FDA-Public Use
  Company Number: None

PATIENT
  Age: 49 Year
  Weight: 49.5 kg

DRUGS (22)
  1. ENTYVIO [Suspect]
     Active Substance: VEDOLIZUMAB
     Indication: CROHN^S DISEASE
     Dosage: ?          QUANTITY:1 INJECTION(S);OTHER FREQUENCY:INFUSED EVERY 8 WK;?
     Route: 042
     Dates: start: 20171214, end: 20180906
  2. XOPENEX [Concomitant]
     Active Substance: LEVALBUTEROL HYDROCHLORIDE
  3. CROMOLYN SODIUM. [Concomitant]
     Active Substance: CROMOLYN SODIUM
  4. TYLENOL [Concomitant]
     Active Substance: ACETAMINOPHEN
  5. KETOTIFEN [Concomitant]
     Active Substance: KETOTIFEN
  6. SINGULAIR [Concomitant]
     Active Substance: MONTELUKAST SODIUM
  7. FOLIC ACID. [Concomitant]
     Active Substance: FOLIC ACID
  8. FLAXSEED [Concomitant]
     Active Substance: FLAX SEED
  9. VITAMIN C [Concomitant]
     Active Substance: ASCORBIC ACID
  10. PEPCID [Concomitant]
     Active Substance: FAMOTIDINE
  11. METHOTREXATE. [Concomitant]
     Active Substance: METHOTREXATE
  12. COLAZAL [Concomitant]
     Active Substance: BALSALAZIDE DISODIUM
  13. MUCINEX-DM [Concomitant]
  14. FISH OIL [Concomitant]
     Active Substance: FISH OIL
  15. FINACEA [Concomitant]
     Active Substance: AZELAIC ACID
  16. FLONASE [Concomitant]
     Active Substance: FLUTICASONE PROPIONATE
  17. MESALAMINE ENEMA [Concomitant]
  18. XYZAL [Concomitant]
     Active Substance: LEVOCETIRIZINE DIHYDROCHLORIDE
  19. ALLEGRA [Concomitant]
     Active Substance: FEXOFENADINE HYDROCHLORIDE
  20. ARNUITY ELLIPTA [Concomitant]
     Active Substance: FLUTICASONE FUROATE
  21. PROTONIX [Concomitant]
     Active Substance: PANTOPRAZOLE SODIUM
  22. ALDACTONE [Concomitant]
     Active Substance: SPIRONOLACTONE

REACTIONS (21)
  - Anaphylactic shock [None]
  - Heart rate increased [None]
  - Pharyngeal swelling [None]
  - Infusion related reaction [None]
  - Peripheral swelling [None]
  - Palpitations [None]
  - Sinus tachycardia [None]
  - Tryptase increased [None]
  - Dyspnoea [None]
  - Mast cell activation syndrome [None]
  - Swollen tongue [None]
  - Balance disorder [None]
  - Romberg test positive [None]
  - Postural orthostatic tachycardia syndrome [None]
  - Blood pressure increased [None]
  - Confusional state [None]
  - Dizziness [None]
  - Arthralgia [None]
  - Ehlers-Danlos syndrome [None]
  - Walking aid user [None]
  - Fibromyalgia [None]

NARRATIVE: CASE EVENT DATE: 20180906
